FAERS Safety Report 8008395-7 (Version None)
Quarter: 2011Q4

REPORT INFORMATION
  Report Type: 
  Country: None (occurrence: None)
  Receive Date: 20111227
  Receipt Date: 20111220
  Transmission Date: 20120403
  Serious: Yes (Other)
  Sender: FDA-Public Use
  Company Number: BR-SANOFI-AVENTIS-2011SA083434

PATIENT
  Age: 78 Year
  Sex: Male
  Weight: 90.2 kg

DRUGS (6)
  1. GLIMEPIRIDE [Concomitant]
  2. ALISKIREN [Concomitant]
     Route: 065
     Dates: start: 20110401
  3. INDAPAMIDE [Suspect]
     Indication: HYPERTENSION
     Route: 048
  4. ANTI-DIABETICS [Concomitant]
  5. AMLODIPINE [Concomitant]
  6. IRBESARTAN [Concomitant]
     Route: 065
     Dates: start: 20110401

REACTIONS (5)
  - PROTEINURIA [None]
  - SINUS BRADYCARDIA [None]
  - RENAL IMPAIRMENT [None]
  - SUPRAVENTRICULAR EXTRASYSTOLES [None]
  - CAROTID ARTERY STENOSIS [None]
